FAERS Safety Report 5657539-0 (Version None)
Quarter: 2008Q1

REPORT INFORMATION
  Report Type: 
  Country: None (occurrence: None)
  Receive Date: 20080310
  Receipt Date: 20080227
  Transmission Date: 20080703
  Serious: Yes (Hospitalization, Other)
  Sender: FDA-Public Use
  Company Number: PHHY2008JP01217

PATIENT
  Age: 64 Year
  Sex: Female
  Weight: 39 kg

DRUGS (3)
  1. PREDONINE [Concomitant]
     Dosage: 5 MG/DAY
  2. DRUG THERAPY NOS [Concomitant]
     Dosage: 100 MG/DAY
     Route: 048
  3. ZOMETA [Suspect]
     Indication: BONE LESION
     Dosage: 4 MG
     Route: 042
     Dates: start: 20060601, end: 20071001

REACTIONS (13)
  - ABSCESS [None]
  - ABSCESS JAW [None]
  - C-REACTIVE PROTEIN INCREASED [None]
  - COMPUTERISED TOMOGRAM ABNORMAL [None]
  - IMPAIRED HEALING [None]
  - MALNUTRITION [None]
  - MULTIPLE MYELOMA [None]
  - OSTEITIS [None]
  - OSTEOMYELITIS [None]
  - RESORPTION BONE INCREASED [None]
  - SWELLING [None]
  - TOOTH AVULSION [None]
  - TOOTHACHE [None]
